FAERS Safety Report 6674620-8 (Version None)
Quarter: 2010Q2

REPORT INFORMATION
  Report Type: 
  Country: None (occurrence: None)
  Receive Date: 20100409
  Receipt Date: 20100405
  Transmission Date: 20101027
  Serious: Yes (Other)
  Sender: FDA-Public Use
  Company Number: EG-ROCHE-695283

PATIENT
  Age: 51 Year
  Sex: Female

DRUGS (1)
  1. HERCEPTIN [Suspect]
     Indication: BREAST CANCER
     Dosage: DRUG REPORTED: HERCIPTEN ROUTE:INFUSION FREQUENCY: THREE WEEKLY SCHEDULE
     Route: 050
     Dates: start: 20100123

REACTIONS (1)
  - FUNGAL INFECTION [None]
